FAERS Safety Report 14484820 (Version 1)
Quarter: 2018Q1

REPORT INFORMATION
  Report Type: Spontaneous
  Country: US (occurrence: US)
  Receive Date: 20180205
  Receipt Date: 20180205
  Transmission Date: 20180509
  Serious: No
  Sender: FDA-Public Use
  Company Number: US-LEO PHARMA-307198

PATIENT
  Sex: Female

DRUGS (1)
  1. PICATO [Suspect]
     Active Substance: INGENOL MEBUTATE
     Indication: PRECANCEROUS SKIN LESION
     Route: 061

REACTIONS (7)
  - Application site swelling [Unknown]
  - Application site scab [Unknown]
  - Application site erythema [Unknown]
  - Eye swelling [Unknown]
  - Application site pruritus [Unknown]
  - Inappropriate schedule of drug administration [Unknown]
  - Ocular hyperaemia [Unknown]
